FAERS Safety Report 5689786-6 (Version None)
Quarter: 2008Q1

REPORT INFORMATION
  Report Type: 
  Country: None (occurrence: None)
  Receive Date: 20080331
  Receipt Date: 20080321
  Transmission Date: 20080703
  Serious: Yes (Other)
  Sender: FDA-Public Use
  Company Number: US-AMGEN-US227926

PATIENT
  Sex: Female
  Weight: 82.6 kg

DRUGS (8)
  1. ENBREL [Suspect]
     Indication: RHEUMATOID ARTHRITIS
     Route: 058
     Dates: start: 20070112, end: 20070227
  2. FLOVENT [Concomitant]
     Route: 055
     Dates: start: 20070112, end: 20070511
  3. ALBUTEROL [Concomitant]
     Route: 055
     Dates: start: 20070112, end: 20070511
  4. ALLEGRA [Concomitant]
     Route: 048
     Dates: start: 20070112, end: 20070511
  5. SINGULAIR [Concomitant]
     Route: 048
     Dates: start: 20070112, end: 20070511
  6. TYLENOL (CAPLET) [Concomitant]
     Route: 048
     Dates: start: 20070315, end: 20070511
  7. VITAMIN TAB [Concomitant]
     Route: 048
     Dates: start: 20070307, end: 20070511
  8. CAFFEINE CITRATE [Concomitant]
     Route: 048
     Dates: start: 20070112, end: 20070501

REACTIONS (2)
  - ABORTION SPONTANEOUS [None]
  - INTRA-UTERINE DEATH [None]
